FAERS Safety Report 8511001-6 (Version None)
Quarter: 2012Q3

REPORT INFORMATION
  Report Type: 
  Country: None (occurrence: None)
  Receive Date: 20120710
  Receipt Date: 20120710
  Transmission Date: 20120928
  Serious: No
  Sender: FDA-Public Use
  Company Number: None

PATIENT

DRUGS (1)
  1. RITE AID BRAND HIGH POTENCY IRON SUPPLEMENT27-MG [Suspect]
     Dates: start: 20120518, end: 20120522

REACTIONS (4)
  - INCORRECT DOSE ADMINISTERED [None]
  - PRODUCT LABEL ISSUE [None]
  - NAUSEA [None]
  - ABDOMINAL PAIN UPPER [None]
